FAERS Safety Report 5565344-9 (Version None)
Quarter: 2007Q4

REPORT INFORMATION
  Report Type: 
  Country: None (occurrence: None)
  Receive Date: 20071218
  Receipt Date: 20070831
  Transmission Date: 20080405
  Serious: No
  Sender: FDA-Public Use
  Company Number: US-BAUSCH-2007BL003150

PATIENT
  Age: 83 Year
  Sex: Female

DRUGS (2)
  1. TOBRAMYCIN [Suspect]
     Indication: KERATOCONJUNCTIVITIS SICCA
     Route: 047
     Dates: start: 20070825, end: 20070829
  2. MAXIDEX [Suspect]
     Indication: KERATOCONJUNCTIVITIS SICCA
     Route: 047
     Dates: start: 20070825, end: 20070827

REACTIONS (3)
  - EYE PAIN [None]
  - EYELID OEDEMA [None]
  - EYELID PAIN [None]
